FAERS Safety Report 15460783 (Version 1)
Quarter: 2018Q4

REPORT INFORMATION
  Report Type: Spontaneous
  Country: AU (occurrence: AU)
  Receive Date: 20181003
  Receipt Date: 20181003
  Transmission Date: 20190204
  Serious: Yes (Hospitalization, Other)
  Sender: FDA-Public Use
  Company Number: AU-MYLANLABS-2018M1070440

PATIENT
  Age: 77 Year
  Sex: Male
  Weight: 125 kg

DRUGS (2)
  1. PREDNISOLONE. [Suspect]
     Active Substance: PREDNISOLONE
     Indication: TUBULOINTERSTITIAL NEPHRITIS
     Route: 065
  2. SULPHAMETHOXAZOLE/TRIMETHOPRIM [Suspect]
     Active Substance: SULFAMETHOXAZOLE\TRIMETHOPRIM
     Indication: PNEUMOCYSTIS JIROVECII PNEUMONIA
     Dosage: DOSAGE: SULFAMETHOXAZOLE/TRIMETHOPRIM (1600MG/320MG) FOUR TIMES A DAY
     Route: 065

REACTIONS (2)
  - Crystalluria [Recovering/Resolving]
  - Pneumocystis jirovecii pneumonia [Recovering/Resolving]
